FAERS Safety Report 4325923-3 (Version None)
Quarter: 2004Q1

REPORT INFORMATION
  Report Type: 
  Country: None (occurrence: None)
  Receive Date: 20040324
  Receipt Date: 20040311
  Transmission Date: 20041129
  Serious: Yes (Other)
  Sender: FDA-Public Use
  Company Number: 2004017484

PATIENT
  Age: 54 Year
  Sex: Male

DRUGS (6)
  1. DILANTIN [Suspect]
     Indication: CONVULSION
     Dosage: 600 MG (BID), ORAL
     Route: 048
  2. METOPROLOL (METOPROLOL) [Concomitant]
  3. QUETIAPINE FUMARATE (QUETIAPINE FUMARATE) [Concomitant]
  4. MULTIVITAMIN [Concomitant]
  5. DOCUSATE SODIUM (DOCUSATE SODIUM) [Concomitant]
  6. LAXATIVES [Concomitant]

REACTIONS (2)
  - ALANINE AMINOTRANSFERASE INCREASED [None]
  - BLOOD SODIUM DECREASED [None]
